FAERS Safety Report 10029634 (Version 1)
Quarter: 2014Q1

REPORT INFORMATION
  Report Type: Spontaneous
  Country: US (occurrence: None)
  Receive Date: 20140320
  Receipt Date: 20140320
  Transmission Date: 20141002
  Serious: Yes (Other)
  Sender: FDA-Public Use
  Company Number: None

PATIENT
  Sex: 0

DRUGS (2)
  1. IRBESARTAN/HYDROCHLOROTHIAZIDE [Suspect]
  2. LOSARTAN POTASSIUM + HYDROCHLOROTHIAZIDE [Suspect]

REACTIONS (3)
  - Product packaging issue [None]
  - Circumstance or information capable of leading to medication error [None]
  - Product label confusion [None]
